FAERS Safety Report 16569972 (Version 2)
Quarter: 2019Q4

REPORT INFORMATION
  Report Type: Report from Study
  Country: IT (occurrence: IT)
  Receive Date: 20190715
  Receipt Date: 20191105
  Transmission Date: 20200122
  Serious: Yes (Hospitalization)
  Sender: FDA-Public Use
  Company Number: IT-TEVA-2019-IT-1076999

PATIENT
  Age: 87 Year
  Sex: Male

DRUGS (10)
  1. DOMPERIDONE [Concomitant]
     Active Substance: DOMPERIDONE
  2. PANTOPRAZOLE SODIUM SESQUIHYDRATE [Concomitant]
     Active Substance: PANTOPRAZOLE SODIUM
  3. EUTIROX 25 MICROGRAMMI COMPRESSE [Suspect]
     Active Substance: LEVOTHYROXINE SODIUM
     Indication: AUTOIMMUNE THYROIDITIS
     Route: 048
     Dates: start: 20180917
  4. LORAZEPAM. [Concomitant]
     Active Substance: LORAZEPAM
  5. BISOPROLOL HEMIFUMARATE [Concomitant]
     Active Substance: BISOPROLOL FUMARATE
  6. KCL-RETARD 600 MG COMPRESSE A RILASCIO PROLUNGATO [Concomitant]
  7. AMIODARONE [Suspect]
     Active Substance: AMIODARONE
     Indication: ATRIAL FIBRILLATION
     Dosage: 200 MILLIGRAM DAILY;
     Route: 048
     Dates: start: 20180917, end: 20190226
  8. DUOPLAVIN 75 MG/100 MG FILM-COATED TABLETS [Concomitant]
  9. ATORVASTATIN [Concomitant]
     Active Substance: ATORVASTATIN
  10. LASIX [Concomitant]
     Active Substance: FUROSEMIDE

REACTIONS (3)
  - Thyroid disorder [Recovering/Resolving]
  - Hypothyroidism [Recovering/Resolving]
  - Bradycardia [Recovering/Resolving]

NARRATIVE: CASE EVENT DATE: 20190226
